FAERS Safety Report 21799301 (Version 3)
Quarter: 2024Q2

REPORT INFORMATION
  Report Type: Spontaneous
  Country: US (occurrence: US)
  Receive Date: 20221230
  Receipt Date: 20240404
  Transmission Date: 20240715
  Serious: Yes (Hospitalization, Other)
  Sender: FDA-Public Use
  Company Number: US-GBT-018935

PATIENT
  Age: 5 Year
  Sex: Female

DRUGS (3)
  1. OXBRYTA [Suspect]
     Active Substance: VOXELOTOR
     Indication: Sickle cell disease
     Dosage: 900 MG, 1X/DAY
     Route: 048
  2. OXBRYTA [Suspect]
     Active Substance: VOXELOTOR
     Dosage: 3 TABLETS FOR ORAL SUSPENSION, ONCE DAILY, ORALLY
     Route: 048
     Dates: start: 20220804
  3. FOLIC ACID [Concomitant]
     Active Substance: FOLIC ACID
     Dosage: UNK
     Route: 048

REACTIONS (1)
  - Sickle cell anaemia with crisis [Unknown]

NARRATIVE: CASE EVENT DATE: 20221220
